FAERS Safety Report 15925312 (Version 1)
Quarter: 2019Q1

REPORT INFORMATION
  Report Type: Spontaneous
  Country: US (occurrence: US)
  Receive Date: 20190206
  Receipt Date: 20190206
  Transmission Date: 20190417
  Serious: No
  Sender: FDA-Public Use
  Company Number: US-PFIZER INC-2019045966

PATIENT
  Age: 80 Year
  Sex: Female
  Weight: 72.57 kg

DRUGS (1)
  1. XELJANZ XR [Suspect]
     Active Substance: TOFACITINIB CITRATE
     Indication: RHEUMATOID ARTHRITIS
     Dosage: 11 MG, DAILY (WITH EACH MEAL DAILY)
     Route: 048

REACTIONS (4)
  - Drug ineffective [Unknown]
  - Malaise [Unknown]
  - Nausea [Unknown]
  - Drug hypersensitivity [Unknown]
